FAERS Safety Report 4866019-1 (Version None)
Quarter: 2005Q4

REPORT INFORMATION
  Report Type: 
  Country: None (occurrence: None)
  Receive Date: 20051221
  Receipt Date: 20051212
  Transmission Date: 20060501
  Serious: Yes (Other)
  Sender: FDA-Public Use
  Company Number: 2005-135778-NL

PATIENT
  Age: 58 Year
  Sex: Male

DRUGS (4)
  1. MIRTAZAPINE [Suspect]
     Dosage: 30 MG QD
  2. MIRTAZAPINE [Suspect]
  3. VENLAFAXINE HCL [Concomitant]
  4. TOPIRAMATE [Concomitant]

REACTIONS (6)
  - DEPRESSION [None]
  - DISSOCIATIVE DISORDER [None]
  - DIZZINESS [None]
  - INSOMNIA [None]
  - IRRITABILITY [None]
  - VERTIGO [None]
